FAERS Safety Report 18217992 (Version 1)
Quarter: 2020Q3

REPORT INFORMATION
  Report Type: Spontaneous
  Country: AU (occurrence: AU)
  Receive Date: 20200901
  Receipt Date: 20200901
  Transmission Date: 20201103
  Serious: Yes (Hospitalization)
  Sender: FDA-Public Use
  Company Number: AU-JNJFOC-20200830446

PATIENT
  Age: 74 Year
  Sex: Male

DRUGS (1)
  1. ERLYAND [Suspect]
     Active Substance: APALUTAMIDE
     Indication: PRODUCT USED FOR UNKNOWN INDICATION
     Route: 048
     Dates: start: 20191216, end: 202001

REACTIONS (5)
  - Fatigue [Unknown]
  - Neutropenia [Unknown]
  - Infection [Unknown]
  - Abdominal discomfort [Unknown]
  - Pollakiuria [Unknown]

NARRATIVE: CASE EVENT DATE: 20200120
